FAERS Safety Report 23709747 (Version 1)
Quarter: 2024Q2

REPORT INFORMATION
  Report Type: Spontaneous
  Country: MA (occurrence: MA)
  Receive Date: 20240404
  Receipt Date: 20240404
  Transmission Date: 20240716
  Serious: Yes (Other)
  Sender: FDA-Public Use
  Company Number: MA-ENDO PHARMACEUTICALS INC-2024-001529

PATIENT
  Age: 18 Year
  Sex: Male

DRUGS (5)
  1. QUETIAPINE FUMARATE [Suspect]
     Active Substance: QUETIAPINE FUMARATE
     Indication: Schizophrenia
     Dosage: 150 MILLIGRAM, DAILY (AFTER 4 DAYS OF PROGRESSIVE TITRATION)
     Route: 065
  2. QUETIAPINE FUMARATE [Suspect]
     Active Substance: QUETIAPINE FUMARATE
     Dosage: 25 MILLIGRAM, UNKNOWN (INITIAL DOSE)
     Route: 065
  3. ESCITALOPRAM [Suspect]
     Active Substance: ESCITALOPRAM OXALATE
     Indication: Schizophrenia
     Dosage: 10 MILLIGRAM, UNKNOWN (INCREASED DOSE - AFTER 5 DAYS)
     Route: 065
  4. ESCITALOPRAM [Suspect]
     Active Substance: ESCITALOPRAM OXALATE
     Dosage: 5 MILLIGRAM, UNKNOWN (INITIAL DOSE)
     Route: 065
  5. ESCITALOPRAM [Suspect]
     Active Substance: ESCITALOPRAM OXALATE
     Dosage: UNK UNKNOWN, UNKNOWN (GRADUAL REDUCTION OF THE DOSAGE OVER 5 DAYS)
     Route: 065

REACTIONS (2)
  - Urinary retention [Recovered/Resolved]
  - Drug interaction [Recovered/Resolved]
